FAERS Safety Report 9788613 (Version 1)
Quarter: 2013Q4

REPORT INFORMATION
  Report Type: Spontaneous
  Country: US (occurrence: US)
  Receive Date: 20131230
  Receipt Date: 20131230
  Transmission Date: 20140711
  Serious: Yes (Other)
  Sender: FDA-Public Use
  Company Number: US-TEVA-453461USA

PATIENT
  Age: 43 Year
  Sex: Male

DRUGS (2)
  1. CISPLATIN [Suspect]
     Indication: TESTICULAR SEMINOMA (PURE)
     Route: 065
  2. ETOPOSIDE [Suspect]
     Indication: TESTICULAR SEMINOMA (PURE)
     Route: 065

REACTIONS (3)
  - Anaemia [Unknown]
  - Thrombocytopenia [Unknown]
  - Retinopathy [Recovered/Resolved]
